FAERS Safety Report 5585372-7 (Version None)
Quarter: 2008Q1

REPORT INFORMATION
  Report Type: 
  Country: None (occurrence: None)
  Receive Date: 20080109
  Receipt Date: 20080107
  Transmission Date: 20080703
  Serious: Yes (Other)
  Sender: FDA-Public Use
  Company Number: US-JNJFOC-20080100498

PATIENT
  Sex: Male

DRUGS (4)
  1. PEPCID [Suspect]
  2. PEPCID [Suspect]
     Indication: DRUG USE FOR UNKNOWN INDICATION
  3. COZAAR [Concomitant]
  4. NORVASC [Concomitant]

REACTIONS (5)
  - ATRIAL FIBRILLATION [None]
  - BLOOD GLUCOSE INCREASED [None]
  - BLOOD PRESSURE INCREASED [None]
  - LEFT VENTRICULAR HYPERTROPHY [None]
  - TROPONIN INCREASED [None]
